FAERS Safety Report 7788364-2 (Version None)
Quarter: 2011Q3

REPORT INFORMATION
  Report Type: 
  Country: None (occurrence: None)
  Receive Date: 20110927
  Receipt Date: 20110919
  Transmission Date: 20111222
  Serious: Yes (Other)
  Sender: FDA-Public Use
  Company Number: 1000023709

PATIENT
  Age: 55 Year
  Sex: Female

DRUGS (2)
  1. SAVELLA (MILNACIPRAN HYDROCHLORIDE) (TABLETS) (MILNACIPRAN HYDROCHLORI [Concomitant]
  2. VIIBRYD [Suspect]
     Indication: DEPRESSION
     Dates: start: 20110101, end: 20110101

REACTIONS (3)
  - CRYING [None]
  - SUICIDAL IDEATION [None]
  - UNEVALUABLE EVENT [None]
